FAERS Safety Report 13651094 (Version 1)
Quarter: 2017Q2

REPORT INFORMATION
  Report Type: Spontaneous
  Country: CN (occurrence: CN)
  Receive Date: 20170614
  Receipt Date: 20170614
  Transmission Date: 20170830
  Serious: Yes (Hospitalization)
  Sender: FDA-Public Use
  Company Number: CN-ASTRAZENECA-2017SE61818

PATIENT
  Age: 32508 Day
  Sex: Male

DRUGS (7)
  1. SULPERAZON [Concomitant]
     Active Substance: CEFOPERAZONE SODIUM\SULBACTAM SODIUM
     Dates: start: 20170220, end: 20170220
  2. LIPITOR [Concomitant]
     Active Substance: ATORVASTATIN CALCIUM
     Dates: start: 20170208, end: 20170222
  3. HARNAL [Concomitant]
     Active Substance: TAMSULOSIN HYDROCHLORIDE
     Dates: start: 20170208, end: 20170308
  4. MEROPENEM. [Suspect]
     Active Substance: MEROPENEM
     Indication: LUNG INFECTION
     Route: 042
     Dates: start: 20170221, end: 20170223
  5. LOTENSIN [Concomitant]
     Active Substance: BENAZEPRIL HYDROCHLORIDE
     Dates: start: 20170208, end: 20170222
  6. FINASTERIDE. [Concomitant]
     Active Substance: FINASTERIDE
     Dates: start: 20170208, end: 20170208
  7. SPIRONOLACTONE. [Concomitant]
     Active Substance: SPIRONOLACTONE
     Dates: start: 20170208, end: 20170222

REACTIONS (1)
  - Disseminated intravascular coagulation [Unknown]

NARRATIVE: CASE EVENT DATE: 20170223
